FAERS Safety Report 8398595-9 (Version None)
Quarter: 2012Q2

REPORT INFORMATION
  Report Type: 
  Country: None (occurrence: None)
  Receive Date: 20120323
  Receipt Date: 20111208
  Transmission Date: 20120825
  Serious: Yes (Hospitalization)
  Sender: FDA-Public Use
  Company Number: 163-21880-11121165

PATIENT
  Age: 91 Year
  Sex: Female
  Weight: 56.246 kg

DRUGS (10)
  1. REVLIMID [Suspect]
     Indication: MYELODYSPLASTIC SYNDROME
     Dosage: 5 MG, QOD, PO
     Route: 048
     Dates: start: 20111016
  2. CENTRUM (CENTRUM) [Concomitant]
  3. CIPROFLOXACIN [Concomitant]
  4. KETOROLAC TROMETHAMINE [Concomitant]
  5. PRILOSEC [Concomitant]
  6. TROMEETHAMINE (ALL OTHER THERAPEUTIC PRODUCTS) [Concomitant]
  7. METOPROLOL TARTRATE [Concomitant]
  8. VIGAMOX [Concomitant]
  9. PREDNISONE SULFATE OP (PREDNISONE) [Concomitant]
  10. POTSSIUM (POTASSIUM) [Concomitant]

REACTIONS (7)
  - CATARACT [None]
  - NASAL DRYNESS [None]
  - DRY THROAT [None]
  - URINARY TRACT INFECTION [None]
  - FATIGUE [None]
  - HEADACHE [None]
  - PLATELET COUNT DECREASED [None]
